FAERS Safety Report 13409604 (Version 1)
Quarter: 2017Q2

REPORT INFORMATION
  Report Type: Other
  Country: CA (occurrence: CA)
  Receive Date: 20170406
  Receipt Date: 20170406
  Transmission Date: 20170830
  Serious: Yes (Disabling)
  Sender: FDA-Public Use
  Company Number: CA-APOTEX-2017AP009228

PATIENT
  Age: 67 Year
  Sex: Female

DRUGS (1)
  1. APO-ANASTROZOLE [Suspect]
     Active Substance: ANASTROZOLE
     Indication: BREAST CANCER
     Dosage: 1 MG, QD
     Route: 048

REACTIONS (3)
  - Pain [Recovered/Resolved]
  - Urinary incontinence [Recovered/Resolved]
  - Asthenia [Recovered/Resolved]
